FAERS Safety Report 7116713-7 (Version None)
Quarter: 2010Q4

REPORT INFORMATION
  Report Type: 
  Country: None (occurrence: None)
  Receive Date: 20101122
  Receipt Date: 20101109
  Transmission Date: 20110411
  Serious: Yes (Hospitalization)
  Sender: FDA-Public Use
  Company Number: PHHY2010IT76254

PATIENT
  Sex: Female

DRUGS (4)
  1. TOLEP [Suspect]
     Indication: INTENTIONAL SELF-INJURY
     Dosage: 300 MG, BID
     Route: 048
     Dates: start: 20100601
  2. TOLEP [Suspect]
     Dosage: UNK
     Route: 048
  3. BROMAZEPAM [Suspect]
     Indication: INTENTIONAL SELF-INJURY
     Dosage: 135 MG, QD
     Route: 048
     Dates: start: 20100914
  4. CITALOPRAM [Suspect]
     Indication: INTENTIONAL SELF-INJURY
     Dosage: 20 MG, QD
     Route: 048
     Dates: start: 20100601

REACTIONS (4)
  - HAEMOGLOBIN DECREASED [None]
  - HYPONATRAEMIA [None]
  - INTENTIONAL OVERDOSE [None]
  - SUICIDE ATTEMPT [None]
